FAERS Safety Report 11322012 (Version 1)
Quarter: 2015Q3

REPORT INFORMATION
  Report Type: Report from Study
  Country: US (occurrence: US)
  Receive Date: 20150729
  Receipt Date: 20150729
  Transmission Date: 20151125
  Serious: Yes (Other)
  Sender: FDA-Public Use
  Company Number: PHEH2014US007211

PATIENT
  Age: 23 Year
  Sex: Female
  Weight: 100 kg

DRUGS (1)
  1. GILENYA [Suspect]
     Active Substance: FINGOLIMOD HYDROCHLORIDE
     Indication: MULTIPLE SCLEROSIS
     Dosage: 0.5 MG, QD
     Route: 048
     Dates: start: 20140409, end: 201507

REACTIONS (7)
  - Neck pain [Unknown]
  - Brain oedema [Unknown]
  - Headache [Recovered/Resolved]
  - Vision blurred [Unknown]
  - Abdominal pain [Unknown]
  - Back pain [Unknown]
  - Headache [Unknown]

NARRATIVE: CASE EVENT DATE: 20140409
